FAERS Safety Report 12242446 (Version 1)
Quarter: 2016Q2

REPORT INFORMATION
  Report Type: Spontaneous
  Country: US (occurrence: None)
  Receive Date: 20160405
  Receipt Date: 20160405
  Transmission Date: 20160815
  Serious: No
  Sender: FDA-Public Use
  Company Number: None

PATIENT
  Age: 50 Year
  Sex: Male
  Weight: 104.33 kg

DRUGS (7)
  1. TUMS [Concomitant]
     Active Substance: CALCIUM CARBONATE
  2. FLONASE [Concomitant]
     Active Substance: FLUTICASONE PROPIONATE
  3. ALEVE [Concomitant]
     Active Substance: NAPROXEN SODIUM
  4. LAMISIL [Concomitant]
     Active Substance: TERBINAFINE HYDROCHLORIDE
  5. XELJANZ [Suspect]
     Active Substance: TOFACITINIB CITRATE
     Indication: RHEUMATOID ARTHRITIS
     Route: 048
     Dates: start: 20160312, end: 20160313
  6. OMPEPRAZOLE [Concomitant]
  7. ALLEGRA [Concomitant]
     Active Substance: FEXOFENADINE HYDROCHLORIDE

REACTIONS (12)
  - Pyrexia [None]
  - Abdominal discomfort [None]
  - Abdominal pain upper [None]
  - Swelling [None]
  - Confusional state [None]
  - Feeling abnormal [None]
  - Thinking abnormal [None]
  - Cough [None]
  - Diarrhoea [None]
  - Cognitive disorder [None]
  - Nasal congestion [None]
  - Chills [None]

NARRATIVE: CASE EVENT DATE: 20160312
